FAERS Safety Report 24012853 (Version 1)
Quarter: 2024Q2

REPORT INFORMATION
  Report Type: Report from Study
  Country: US (occurrence: US)
  Receive Date: 20240626
  Receipt Date: 20240626
  Transmission Date: 20240716
  Serious: No
  Sender: FDA-Public Use
  Company Number: US-Accord-378442

PATIENT
  Age: 76 Year
  Sex: Male

DRUGS (7)
  1. AMLODIPINE [Suspect]
     Active Substance: AMLODIPINE BESYLATE
     Indication: Hypertension
     Route: 065
  2. RELUGOLIX [Suspect]
     Active Substance: RELUGOLIX
     Indication: Prostate cancer
     Dosage: STRENGTH:120 MILLIGRAM
     Route: 048
     Dates: start: 20230309
  3. FLOMAX [Suspect]
     Active Substance: TAMSULOSIN HYDROCHLORIDE
     Indication: Product used for unknown indication
     Route: 065
  4. PENICILLIN [Suspect]
     Active Substance: PENICILLIN
     Indication: Product used for unknown indication
  5. RELUGOLIX [Suspect]
     Active Substance: RELUGOLIX
     Indication: Prostate cancer
     Dosage: STRENGTH: 120 MILLIGRAM
     Route: 065
  6. RELUGOLIX [Suspect]
     Active Substance: RELUGOLIX
     Indication: Prostate cancer
     Dosage: STRENGTH: 120 MILLIGRAM
     Route: 065
  7. RELUGOLIX [Suspect]
     Active Substance: RELUGOLIX
     Indication: Prostate cancer
     Dosage: STRENGTH: 120 MILLIGRAM
     Route: 065

REACTIONS (7)
  - Dizziness [Not Recovered/Not Resolved]
  - Visual brightness [Unknown]
  - Impatience [Unknown]
  - Irritability [Unknown]
  - Asthenia [Unknown]
  - Fatigue [Unknown]
  - Hot flush [Unknown]
